FAERS Safety Report 13159121 (Version 1)
Quarter: 2017Q1

REPORT INFORMATION
  Report Type: Spontaneous
  Country: NZ (occurrence: NZ)
  Receive Date: 20170127
  Receipt Date: 20170127
  Transmission Date: 20170428
  Serious: Yes (Life-Threatening, Hospitalization)
  Sender: FDA-Public Use
  Company Number: NZ-TEVA-732762ISR

PATIENT
  Age: 54 Year
  Sex: Female

DRUGS (2)
  1. AMLODIPINE [Suspect]
     Active Substance: AMLODIPINE BESYLATE
     Indication: INTENTIONAL OVERDOSE
     Dosage: 200MG (20 TIMES DAILY DOSE)
     Route: 048
  2. LOSARTAN. [Suspect]
     Active Substance: LOSARTAN
     Indication: INTENTIONAL OVERDOSE
     Dosage: 2,7000MG (27 TIMES MAXIMUM DAILY DOSE)
     Route: 048

REACTIONS (3)
  - Intentional overdose [Recovered/Resolved]
  - Hypotension [Unknown]
  - Renal failure [Recovered/Resolved]
